FAERS Safety Report 18982055 (Version 3)
Quarter: 2021Q1

REPORT INFORMATION
  Report Type: Report from Study
  Country: ZW (occurrence: ZW)
  Receive Date: 20210308
  Receipt Date: 20210316
  Transmission Date: 20210420
  Serious: Yes (Death)
  Sender: FDA-Public Use
  Company Number: ZW-VIIV HEALTHCARE LIMITED-ZW2021GSK057599

PATIENT
  Age: 15 Year
  Sex: Male
  Weight: 33 kg

DRUGS (12)
  1. PESTICIDE [Suspect]
     Active Substance: UNSPECIFIED INGREDIENT
     Indication: PRODUCT USED FOR UNKNOWN INDICATION
     Dosage: UNK
     Dates: start: 20210303
  2. TENOFOVIR [Concomitant]
     Active Substance: TENOFOVIR
     Dosage: 300 MG
     Dates: start: 20190416
  3. COTRIMOXAZOLE [Concomitant]
     Active Substance: SULFAMETHOXAZOLE\TRIMETHOPRIM
     Dosage: 960 MG
     Dates: start: 20161018
  4. ATAZANAVIR. [Concomitant]
     Active Substance: ATAZANAVIR
     Indication: HIV INFECTION
     Dosage: 300 MG
     Dates: start: 20190416
  5. RITONAVIR. [Concomitant]
     Active Substance: RITONAVIR
     Dosage: 100 MG
     Dates: start: 20190416
  6. RISPERIDONE. [Concomitant]
     Active Substance: RISPERIDONE
     Indication: EPILEPSY
     Dosage: UNK
     Dates: start: 20170124
  7. DOLUTEGRAVIR [Suspect]
     Active Substance: DOLUTEGRAVIR
     Indication: HIV INFECTION
     Dosage: 5 MG
     Dates: start: 20161018, end: 20170619
  8. LAMIVUDINE. [Concomitant]
     Active Substance: LAMIVUDINE
     Dosage: 300 MG
     Dates: start: 20191018
  9. NEVIRAPINE. [Concomitant]
     Active Substance: NEVIRAPINE
     Indication: HIV INFECTION
     Dosage: 200 MG
     Dates: start: 20170619
  10. ABACAVIR. [Concomitant]
     Active Substance: ABACAVIR
     Dosage: 600 MG
     Dates: start: 20161018, end: 20190415
  11. VALPROATE SODIUM. [Concomitant]
     Active Substance: VALPROATE SODIUM
     Dosage: UNK
     Dates: start: 20161213
  12. HALOPERIDOL. [Concomitant]
     Active Substance: HALOPERIDOL

REACTIONS (1)
  - Completed suicide [Fatal]

NARRATIVE: CASE EVENT DATE: 20210303
